FAERS Safety Report 6628745-3 (Version None)
Quarter: 2010Q1

REPORT INFORMATION
  Report Type: 
  Country: None (occurrence: None)
  Receive Date: 20100309
  Receipt Date: 20100223
  Transmission Date: 20100710
  Serious: Yes (Death)
  Sender: FDA-Public Use
  Company Number: A-NJ2009-27248

PATIENT
  Age: 44 Year
  Sex: Female

DRUGS (6)
  1. TRACLEER [Suspect]
     Indication: PULMONARY ARTERIAL HYPERTENSION
     Dosage: 125 MG, BID, ORAL
     Route: 048
     Dates: end: 20091204
  2. TRACLEER [Suspect]
     Indication: PULMONARY ARTERIAL HYPERTENSION
     Dosage: 125 MG, BID, ORAL
     Route: 048
     Dates: start: 20020402
  3. VENTAVIS [Suspect]
     Indication: PULMONARY ARTERIAL HYPERTENSION
     Dosage: 5 UG, 6 X/DAY, RESPIRATORY
     Route: 055
     Dates: start: 20090715, end: 20091204
  4. TADALAFIL (TADALAFIL) [Concomitant]
  5. NORVASC [Concomitant]
  6. COUMADIN [Concomitant]

REACTIONS (2)
  - DYSPNOEA [None]
  - SYNCOPE [None]
